FAERS Safety Report 11909705 (Version 1)
Quarter: 2016Q1

REPORT INFORMATION
  Report Type: Spontaneous
  Country: US (occurrence: None)
  Receive Date: 20160111
  Receipt Date: 20160111
  Transmission Date: 20160526
  Serious: No
  Sender: FDA-Public Use
  Company Number: None

PATIENT
  Sex: Female

DRUGS (1)
  1. IBRANCE [Suspect]
     Active Substance: PALBOCICLIB
     Indication: BREAST CANCER
     Dosage: 1 PO QD FOR 21 DAYS  OF 28 DAYS CYCLE
     Route: 048
     Dates: start: 20150818, end: 201601

REACTIONS (2)
  - Neoplasm progression [None]
  - Therapy cessation [None]
